FAERS Safety Report 17026040 (Version 2)
Quarter: 2019Q4

REPORT INFORMATION
  Report Type: Spontaneous
  Country: JP (occurrence: JP)
  Receive Date: 20191113
  Receipt Date: 20191125
  Transmission Date: 20200122
  Serious: Yes (Death, Hospitalization, Other)
  Sender: FDA-Public Use
  Company Number: JP-009507513-1910JPN002195J

PATIENT
  Age: 72 Year
  Sex: Female

DRUGS (1)
  1. KEYTRUDA [Suspect]
     Active Substance: PEMBROLIZUMAB
     Indication: NON-SMALL CELL LUNG CANCER
     Dosage: 200 MILLIGRAM, Q3W
     Route: 041
     Dates: start: 20190716, end: 20190926

REACTIONS (10)
  - Lymphangiosis carcinomatosa [Unknown]
  - Electrolyte imbalance [Unknown]
  - Blood potassium decreased [Unknown]
  - Staphylococcus test positive [Unknown]
  - Dehydration [Unknown]
  - Hypoalbuminaemia [Unknown]
  - Pulmonary oedema [Fatal]
  - Encephalitis [Unknown]
  - Decreased appetite [Unknown]
  - Nausea [Unknown]

NARRATIVE: CASE EVENT DATE: 2019
